FAERS Safety Report 9720376 (Version 1)
Quarter: 2013Q4

REPORT INFORMATION
  Report Type: Spontaneous
  Country: US (occurrence: US)
  Receive Date: 20131129
  Receipt Date: 20131129
  Transmission Date: 20140711
  Serious: Yes (Other)
  Sender: FDA-Public Use
  Company Number: US-JNJFOC-20131114099

PATIENT
  Sex: Male

DRUGS (2)
  1. TYLENOL EXTRA STRENGTH CAPLET [Suspect]
     Route: 048
  2. TYLENOL EXTRA STRENGTH CAPLET [Suspect]
     Indication: SUICIDE ATTEMPT
     Dosage: 30 TABLETS YESTERDAY
     Route: 048
     Dates: start: 20131120

REACTIONS (5)
  - Suicide attempt [Unknown]
  - Intentional overdose [Unknown]
  - Vomiting [Unknown]
  - Malaise [Unknown]
  - Decreased appetite [Not Recovered/Not Resolved]
